FAERS Safety Report 10161243 (Version 2)
Quarter: 2014Q2

REPORT INFORMATION
  Report Type: Spontaneous
  Country: US (occurrence: US)
  Receive Date: 20140508
  Receipt Date: 20140519
  Transmission Date: 20141212
  Serious: No
  Sender: FDA-Public Use
  Company Number: US-009507513-1404USA013684

PATIENT
  Sex: 0

DRUGS (1)
  1. BETAMETHASONE [Suspect]
     Route: 048

REACTIONS (1)
  - Foetal exposure during pregnancy [Recovered/Resolved]
